FAERS Safety Report 26194081 (Version 2)
Quarter: 2025Q4

REPORT INFORMATION
  Report Type: Report from Study
  Country: CN (occurrence: CN)
  Receive Date: 20251224
  Receipt Date: 20251224
  Transmission Date: 20260118
  Serious: Yes (Hospitalization, Other)
  Sender: ROCHE
  Company Number: CN-ROCHE-10000024982

PATIENT
  Age: 65 Year
  Sex: Male
  Weight: 83 kg

DRUGS (30)
  1. POLATUZUMAB VEDOTIN [Suspect]
     Active Substance: POLATUZUMAB VEDOTIN
     Indication: Diffuse large B-cell lymphoma
     Dosage: SUBSEQUENT DOSE DATE: 02-JUN-2024, 31-AUG-2024
     Route: 041
     Dates: start: 20240422, end: 20240422
  2. RITUXIMAB [Suspect]
     Active Substance: RITUXIMAB
     Indication: Diffuse large B-cell lymphoma
     Dosage: SUBSEQUENT DOSE DATE: 31-MAY-2024,
     Route: 041
     Dates: start: 20240417, end: 20240417
  3. VINCRISTINE SULFATE [Suspect]
     Active Substance: VINCRISTINE SULFATE
     Indication: Diffuse large B-cell lymphoma
     Route: 041
     Dates: start: 20240418, end: 20240418
  4. DOXORUBICIN HYDROCHLORIDE [Suspect]
     Active Substance: DOXORUBICIN HYDROCHLORIDE
     Indication: Diffuse large B-cell lymphoma
     Dosage: SUBSEQUENT DOSE DATE: 01-JUN-2024
     Route: 041
     Dates: start: 20240418, end: 20240419
  5. CYCLOPHOSPHAMIDE [Suspect]
     Active Substance: CYCLOPHOSPHAMIDE
     Indication: Diffuse large B-cell lymphoma
     Dosage: SUBSEQUENT DOSE DATE: 01-JUN-2024
     Route: 041
     Dates: start: 20240418, end: 20240419
  6. PREDNISONE [Suspect]
     Active Substance: PREDNISONE
     Indication: Diffuse large B-cell lymphoma
     Dosage: 01/JUN/2025 RECEIVED SUBSEQUENT DOSE
     Route: 048
     Dates: start: 20240417, end: 20240421
  7. SODIUM BICARBONATE [Concomitant]
     Active Substance: SODIUM BICARBONATE
     Route: 048
     Dates: start: 20240416
  8. PROMETHAZINE [Concomitant]
     Active Substance: PROMETHAZINE HYDROCHLORIDE
     Dosage: SUBSEQUENT DOSE DATE: 07-AUG-2024/08-AUG-2024, 19-SEP-2024/20-SEP-2024, 31-AUG-2024, 17-APR-2024, 22-APR-2024, 10-MAY-2024, 31-MAY-2024, 01-JUN-2024
     Route: 030
     Dates: start: 20240829, end: 20240829
  9. SODIUM CHLORIDE [Concomitant]
     Active Substance: SODIUM CHLORIDE
     Dosage: SUBSEQUENT DOSE DATE: 28-JUN-2024
     Route: 041
     Dates: start: 20240628, end: 20240702
  10. SODIUM CHLORIDE [Concomitant]
     Active Substance: SODIUM CHLORIDE
     Dosage: SUBSEQUENT DOSE DATE: 11-MAY-2024, 01-JUN-2024
     Route: 041
     Dates: start: 20240419, end: 20240421
  11. SODIUM CHLORIDE [Concomitant]
     Active Substance: SODIUM CHLORIDE
     Dosage: SUBSEQUENT DOSE DATE: 31-MAY-2024
     Route: 041
     Dates: start: 20240511, end: 20240512
  12. SODIUM CHLORIDE [Concomitant]
     Active Substance: SODIUM CHLORIDE
     Route: 041
     Dates: start: 20240601, end: 20240602
  13. DICLOFENAC SODIUM [Concomitant]
     Active Substance: DICLOFENAC SODIUM
     Dosage: SUBSEQUENT DOSE DATE: 07-AUG-2024/08-AUG-2024, 19-SEP-2024/20-SEP-2024, 10-OCT-2024/11-OCT-2024, 17-APR-2024, 29-AUG-2024, 22-APR-2024, 10-MAY-2024, 31-MAY-2024, 01-JUN-2024
     Dates: start: 20240831, end: 20240831
  14. GLUTATHIONE [Concomitant]
     Active Substance: GLUTATHIONE
     Dosage: SUBSEQUENT DOSE DATE: 08-AUG-2024/09-AUG-2024, 20-SEP-2024/21-SEP-2024, 19-APR-2024, 11-MAY-2024, 01-JUN-2024
     Route: 041
     Dates: start: 20240830, end: 20240831
  15. AMIFOSTINE [Concomitant]
     Active Substance: AMIFOSTINE
     Dosage: SUBSEQUENT DOSE DATE: 20-SEP-2024, 19-APR-2024, 11-MAY-2024
     Route: 041
     Dates: start: 20240830, end: 20240830
  16. DEXRAZOXANE [Concomitant]
     Active Substance: DEXRAZOXANE
     Dosage: SUBSEQUENT DOSE DATE: 19-APR-2024, 11-MAY-2024
     Route: 041
     Dates: start: 20240830, end: 20240830
  17. DEXRAZOXANE [Concomitant]
     Active Substance: DEXRAZOXANE
     Route: 041
     Dates: start: 20240601, end: 20240601
  18. CEFOPERAZONE SODIUM\SULBACTAM SODIUM [Concomitant]
     Active Substance: CEFOPERAZONE SODIUM\SULBACTAM SODIUM
     Dosage: SUBSEQUENT DOSE DATE: 28-JUN-2024
     Route: 041
     Dates: start: 20240628, end: 20240704
  19. HUMAN IMMUNOGLOBULIN G [Concomitant]
     Active Substance: HUMAN IMMUNOGLOBULIN G
     Dosage: SUBSEQUENT DOSE DATE: 29-JUN-2024, 31-AUG-2024
     Route: 041
     Dates: start: 20240629, end: 20240630
  20. Lactulose oral liquid [Concomitant]
     Route: 048
     Dates: start: 20240626, end: 2024
  21. Propofol medium/long chain fat milk injection [Concomitant]
     Route: 041
     Dates: start: 20240627, end: 20240627
  22. Sufentanil citrate inj [Concomitant]
     Route: 041
     Dates: start: 20240627, end: 20240627
  23. LIDOCAINE HYDROCHLORIDE [Concomitant]
     Active Substance: LIDOCAINE HYDROCHLORIDE
     Dosage: SUBSEQUENT DOSE DATE: 12-OCT-2024/12-OCT-2024, 20-NOV-2024/20-NOV-2024
     Route: 055
     Dates: start: 20240627, end: 20240627
  24. LIDOCAINE HYDROCHLORIDE [Concomitant]
     Active Substance: LIDOCAINE HYDROCHLORIDE
     Route: 055
     Dates: start: 20240627, end: 20240627
  25. ESOMEPRAZOLE SODIUM [Concomitant]
     Active Substance: ESOMEPRAZOLE SODIUM
     Dosage: SUBSEQUENT DOSE DATE: 01-SEP-2024/02-SEP-2024
     Route: 041
     Dates: start: 20240629, end: 20240629
  26. Glycerin enema [Concomitant]
     Dosage: ENEMA
     Dates: start: 20240703, end: 20240703
  27. DEXAMETHASONE SODIUM PHOSPHATE [Concomitant]
     Active Substance: DEXAMETHASONE SODIUM PHOSPHATE
     Dosage: SUBSEQUENT DOSE DATE: 07-AUG-2024/08-AUG-2024, 19-SEP-2024/20-SEP-2024, 10-OCT-2024/11-OCT-2024, 12-OCT-2024/12-OCT-2024, 22-OCT-2024/22-OCT-2024, 20-NOV-2024/20-NOV-2024, 17-APR-2024, 10-MAY-2024
     Route: 042
     Dates: start: 20240829, end: 20240829
  28. Ondansetron hydrochloride inj [Concomitant]
     Dosage: SUBSEQUENT DOSE DATE: 19-APR-2024
     Route: 042
     Dates: start: 20240830, end: 20240831
  29. Pegylated recombinant human granulocyte stimulating factor injection [Concomitant]
     Dosage: ONLY ONCE?SUBSEQUENT DOSE DATE: 12-MAY-2024, 02-JUN-2024
     Route: 058
  30. METHOTREXATE [Concomitant]
     Active Substance: METHOTREXATE
     Dosage: MEDICATION FREQUENCY ONCE?SUBSEQUENT DOSE DATE: 22-OCT-2024, 20-NOV-2024
     Route: 037

REACTIONS (14)
  - Pneumonia [Recovered/Resolved]
  - Acute coronary syndrome [Recovered/Resolved]
  - Alanine aminotransferase increased [Not Recovered/Not Resolved]
  - Leukopenia [Recovered/Resolved]
  - Neutrophil count decreased [Not Recovered/Not Resolved]
  - Pain [Recovered/Resolved]
  - Hypoxia [Recovered/Resolved]
  - Cough [Recovered/Resolved]
  - Neuropathy peripheral [Recovered/Resolved]
  - Nausea [Recovered/Resolved]
  - Vomiting [Recovered/Resolved]
  - White blood cell count decreased [Not Recovered/Not Resolved]
  - Neutropenia [Recovered/Resolved]
  - Abdominal pain [Recovered/Resolved]

NARRATIVE: CASE EVENT DATE: 20240508
